FAERS Safety Report 7999833-4 (Version None)
Quarter: 2011Q4

REPORT INFORMATION
  Report Type: 
  Country: None (occurrence: None)
  Receive Date: 20111222
  Receipt Date: 20111215
  Transmission Date: 20120403
  Serious: No
  Sender: FDA-Public Use
  Company Number: US-BIOGENIDEC-2010BI043195

PATIENT
  Sex: Female

DRUGS (2)
  1. TYSABRI [Suspect]
     Indication: MULTIPLE SCLEROSIS
     Route: 042
     Dates: start: 20101014
  2. TYSABRI [Suspect]
     Route: 042
     Dates: start: 20080815, end: 20090131

REACTIONS (21)
  - FATIGUE [None]
  - NASOPHARYNGITIS [None]
  - NEUROPATHY PERIPHERAL [None]
  - MUSCLE SPASMS [None]
  - PARANASAL SINUS HYPERSECRETION [None]
  - HEADACHE [None]
  - ABDOMINAL PAIN UPPER [None]
  - BACK PAIN [None]
  - COGNITIVE DISORDER [None]
  - ATTENTION DEFICIT/HYPERACTIVITY DISORDER [None]
  - PERONEAL NERVE PALSY [None]
  - MIGRAINE [None]
  - COUGH [None]
  - MENTAL IMPAIRMENT [None]
  - MUSCULAR WEAKNESS [None]
  - DEMYELINATION [None]
  - DIZZINESS [None]
  - TRIGEMINAL NEURALGIA [None]
  - VISUAL ACUITY REDUCED [None]
  - PAIN IN EXTREMITY [None]
  - FEELING ABNORMAL [None]
